FAERS Safety Report 13097463 (Version 4)
Quarter: 2017Q2

REPORT INFORMATION
  Report Type: Spontaneous
  Country: US (occurrence: US)
  Receive Date: 20170109
  Receipt Date: 20170518
  Transmission Date: 20170830
  Serious: No
  Sender: FDA-Public Use
  Company Number: US-TEVA-724382ACC

PATIENT
  Age: 42 Year
  Sex: Female

DRUGS (12)
  1. VITAMIN D3 [Concomitant]
     Active Substance: CHOLECALCIFEROL
  2. RECLIPSEN [Concomitant]
     Active Substance: DESOGESTREL\ETHINYL ESTRADIOL
  3. AMANTADINE. [Concomitant]
     Active Substance: AMANTADINE HYDROCHLORIDE
  4. MYRBETRIQ [Concomitant]
     Active Substance: MIRABEGRON
  5. IBUPROFEN. [Concomitant]
     Active Substance: IBUPROFEN
  6. COPAXONE [Suspect]
     Active Substance: GLATIRAMER ACETATE
     Indication: MULTIPLE SCLEROSIS
     Dosage: PRE FILLED SYRINGE
     Route: 058
     Dates: start: 20140520
  7. TOLTERODINE [Concomitant]
     Active Substance: TOLTERODINE
  8. FLUTICASONE. [Concomitant]
     Active Substance: FLUTICASONE
  9. ESCITALOPRAM [Concomitant]
     Active Substance: ESCITALOPRAM OXALATE
  10. VESICARE [Concomitant]
     Active Substance: SOLIFENACIN SUCCINATE
  11. TRAMADOL. [Concomitant]
     Active Substance: TRAMADOL
  12. DOK [Concomitant]
     Active Substance: DOCUSATE SODIUM

REACTIONS (5)
  - Dizziness [Recovered/Resolved]
  - Intentional dose omission [Unknown]
  - Injection site irritation [Unknown]
  - Chest discomfort [Recovered/Resolved]
  - Injection site reaction [Not Recovered/Not Resolved]

NARRATIVE: CASE EVENT DATE: 2015
